FAERS Safety Report 24316771 (Version 1)
Quarter: 2024Q3

REPORT INFORMATION
  Report Type: Spontaneous
  Country: US (occurrence: US)
  Receive Date: 20240913
  Receipt Date: 20240913
  Transmission Date: 20241017
  Serious: Yes (Death, Other)
  Sender: DR REDDYS
  Company Number: US-DRL-USA-SPO/USA/24/0013101

PATIENT
  Age: 61 Year

DRUGS (7)
  1. DONEPEZIL [Suspect]
     Active Substance: DONEPEZIL\DONEPEZIL HYDROCHLORIDE
     Indication: Product used for unknown indication
  2. LEVETIRACETAM [Suspect]
     Active Substance: LEVETIRACETAM
     Indication: Product used for unknown indication
  3. GABAPENTIN [Suspect]
     Active Substance: GABAPENTIN
     Indication: Anticoagulant therapy
  4. TRAZODONE [Suspect]
     Active Substance: TRAZODONE HYDROCHLORIDE
     Indication: Anticoagulant therapy
  5. MIRTAZAPINE [Concomitant]
     Active Substance: MIRTAZAPINE
     Indication: Anticoagulant therapy
  6. TOPIRAMATE [Concomitant]
     Active Substance: TOPIRAMATE
     Indication: Anticoagulant therapy
  7. MEPROBAMATE [Concomitant]
     Active Substance: MEPROBAMATE
     Indication: Anticoagulant therapy

REACTIONS (2)
  - Overdose [Fatal]
  - Toxicity to various agents [Fatal]
